FAERS Safety Report 10221435 (Version 1)
Quarter: 2014Q2

REPORT INFORMATION
  Report Type: Spontaneous
  Country: FR (occurrence: FR)
  Receive Date: 20140606
  Receipt Date: 20140606
  Transmission Date: 20141212
  Serious: Yes (Hospitalization)
  Sender: FDA-Public Use
  Company Number: FR-JNJFOC-20140519195

PATIENT
  Age: 79 Year
  Sex: Female

DRUGS (6)
  1. XARELTO [Suspect]
     Indication: PRODUCT USED FOR UNKNOWN INDICATION
     Route: 048
     Dates: start: 201402, end: 20140410
  2. SEROPLEX [Concomitant]
     Route: 048
  3. INEXIUM [Concomitant]
     Route: 048
  4. RAMIPRIL [Concomitant]
     Route: 048
  5. BISOPROLOL HEMIFUMARATE [Concomitant]
     Route: 048
  6. DIGOXINE NATIVELLE [Concomitant]
     Route: 048

REACTIONS (2)
  - Muscle haemorrhage [Recovering/Resolving]
  - Anaemia [Unknown]
